FAERS Safety Report 13065338 (Version 3)
Quarter: 2017Q1

REPORT INFORMATION
  Report Type: Spontaneous
  Country: US (occurrence: US)
  Receive Date: 20161227
  Receipt Date: 20170314
  Transmission Date: 20170428
  Serious: Yes (Hospitalization, Other)
  Sender: FDA-Public Use
  Company Number: US-JNJFOC-20161220563

PATIENT
  Age: 31 Year
  Sex: Female

DRUGS (2)
  1. HALDOL [Suspect]
     Active Substance: HALOPERIDOL
     Indication: BIPOLAR DISORDER
     Route: 065
  2. HALDOL [Suspect]
     Active Substance: HALOPERIDOL
     Indication: BIPOLAR DISORDER
     Dosage: DURING OTHER INPATIENT STAYS.
     Route: 065

REACTIONS (3)
  - Kyphosis [Recovered/Resolved]
  - Vertebral osteophyte [Recovered/Resolved]
  - Dystonia [Recovered/Resolved]
